FAERS Safety Report 5196268-7 (Version None)
Quarter: 2006Q4

REPORT INFORMATION
  Report Type: 
  Country: None (occurrence: None)
  Receive Date: 20061222
  Receipt Date: 20061211
  Transmission Date: 20070319
  Serious: Yes (Other)
  Sender: FDA-Public Use
  Company Number: 2006152607

PATIENT
  Age: 61 Year
  Sex: Female

DRUGS (4)
  1. LYRICA [Suspect]
     Indication: NEURALGIA
     Dosage: 150 MG (75 MG, 2 IN 1 D), ORAL
     Route: 048
     Dates: start: 20060910, end: 20060927
  2. CODEINE SUL TAB [Suspect]
     Indication: NEURALGIA
  3. PARACETAMOL [Suspect]
     Indication: NEURALGIA
  4. ASPIRIN [Suspect]
     Indication: NEURALGIA

REACTIONS (10)
  - ASTHENIA [None]
  - DIZZINESS [None]
  - EUPHORIC MOOD [None]
  - FALL [None]
  - FATIGUE [None]
  - FEELING COLD [None]
  - INADEQUATE ANALGESIA [None]
  - MULTIPLE SCLEROSIS [None]
  - NAUSEA [None]
  - TREMOR [None]
